FAERS Safety Report 13125354 (Version 1)
Quarter: 2017Q1

REPORT INFORMATION
  Report Type: Spontaneous
  Country: US (occurrence: US)
  Receive Date: 20170117
  Receipt Date: 20170117
  Transmission Date: 20170428
  Serious: No
  Sender: FDA-Public Use
  Company Number: None

PATIENT
  Age: 51 Year
  Sex: Female
  Weight: 67.5 kg

DRUGS (14)
  1. ZOFRAN [Concomitant]
     Active Substance: ONDANSETRON HYDROCHLORIDE
  2. IV NUTRIENT THERAPY [Concomitant]
  3. AVELOX [Suspect]
     Active Substance: MOXIFLOXACIN HYDROCHLORIDE
     Indication: NEPHROLITHIASIS
     Dosage: ?          QUANTITY:1 CAPSULE(S);?
     Route: 048
  4. METANX [Concomitant]
     Active Substance: LEVOMEFOLATE CALCIUM\METHYLCOBALAMIN\PYRIDOXAL PHOSPHATE ANHYDROUS
  5. IRON [Concomitant]
     Active Substance: IRON
  6. COQ10 [Concomitant]
     Active Substance: UBIDECARENONE
  7. AMBIEN ER [Concomitant]
  8. MULTIVITAMIN [Concomitant]
     Active Substance: VITAMINS
  9. GLUTATHIONE [Concomitant]
     Active Substance: GLUTATHIONE
  10. VITAMINS C [Concomitant]
  11. LEVOXYL [Concomitant]
     Active Substance: LEVOTHYROXINE SODIUM
  12. DILAUDID [Concomitant]
     Active Substance: HYDROMORPHONE HYDROCHLORIDE
  13. AMBIEN CR [Concomitant]
     Active Substance: ZOLPIDEM TARTRATE
  14. MAGNESIUM [Concomitant]
     Active Substance: MAGNESIUM

REACTIONS (7)
  - Oedema peripheral [None]
  - Arthralgia [None]
  - Nausea [None]
  - Sleep disorder [None]
  - Vomiting [None]
  - Mass [None]
  - Pain in extremity [None]

NARRATIVE: CASE EVENT DATE: 20160717
